FAERS Safety Report 7648798-3 (Version None)
Quarter: 2011Q3

REPORT INFORMATION
  Report Type: 
  Country: None (occurrence: None)
  Receive Date: 20110801
  Receipt Date: 20110726
  Transmission Date: 20111222
  Serious: Yes (Other)
  Sender: FDA-Public Use
  Company Number: PHHY2010US56636

PATIENT
  Sex: Female

DRUGS (2)
  1. GLEEVEC [Suspect]
     Indication: CHRONIC MYELOID LEUKAEMIA
     Dosage: 400 MG, DAILY
     Route: 048
     Dates: start: 20100429, end: 20110301
  2. SPRYCEL [Concomitant]
     Dosage: UNK
     Dates: start: 20110301, end: 20110401

REACTIONS (10)
  - OROPHARYNGEAL PAIN [None]
  - NAUSEA [None]
  - BLOOD THYROID STIMULATING HORMONE DECREASED [None]
  - MUSCLE SPASMS [None]
  - FOOD CRAVING [None]
  - HEADACHE [None]
  - DRUG RESISTANCE [None]
  - CARDIAC FAILURE CONGESTIVE [None]
  - VOMITING [None]
  - DRUG INTOLERANCE [None]
